FAERS Safety Report 11050402 (Version 2)
Quarter: 2022Q3

REPORT INFORMATION
  Report Type: Report from Study
  Country: CA (occurrence: None)
  Receive Date: 20150421
  Receipt Date: 20220723
  Transmission Date: 20221026
  Serious: Yes (Other)
  Sender: FDA-Public Use
  Company Number: 2015SE34695

PATIENT
  Age: 74 Year
  Sex: Female

DRUGS (11)
  1. ZOMIG [Suspect]
     Active Substance: ZOLMITRIPTAN
     Indication: Migraine
     Route: 065
  2. CALCIUM CHLORIDE [Suspect]
     Active Substance: CALCIUM CHLORIDE
     Indication: Blood calcium abnormal
     Route: 065
  3. DENOSUMAB [Suspect]
     Active Substance: DENOSUMAB
     Indication: Osteoporosis postmenopausal
     Route: 058
  4. ATENOLOL [Concomitant]
     Active Substance: ATENOLOL
  5. COD LIVER OIL [Concomitant]
     Active Substance: COD LIVER OIL
  6. UNSPECIFIED INGREDIENT [Concomitant]
     Active Substance: UNSPECIFIED INGREDIENT
  7. PANTOPRAZOLE MAGNESIUM [Concomitant]
     Active Substance: PANTOPRAZOLE MAGNESIUM
  8. ROSUVASTATIN CALCIUM [Concomitant]
     Active Substance: ROSUVASTATIN CALCIUM
  9. TUMS [Concomitant]
     Active Substance: CALCIUM CARBONATE
  10. TYLENOL [Concomitant]
     Active Substance: ACETAMINOPHEN
  11. VITAMIN D [Concomitant]
     Active Substance: VITAMIN D NOS

REACTIONS (9)
  - Nausea [Unknown]
  - Palpitations [Unknown]
  - Breast mass [Unknown]
  - Pain [Unknown]
  - Cataract [Unknown]
  - Influenza [Unknown]
  - Malaise [Unknown]
  - Migraine [Unknown]
  - Weight decreased [Unknown]
